FAERS Safety Report 6692992-5 (Version None)
Quarter: 2010Q2

REPORT INFORMATION
  Report Type: 
  Country: None (occurrence: None)
  Receive Date: 20100419
  Receipt Date: 20100406
  Transmission Date: 20101027
  Serious: Yes (Hospitalization)
  Sender: FDA-Public Use
  Company Number: 557465

PATIENT
  Age: 47 Year
  Sex: Female

DRUGS (25)
  1. PROPOFOL [Suspect]
     Dosage: INTRAVENOUS
     Route: 042
     Dates: start: 20100209, end: 20100302
  2. MIDAZOLAM HCL [Suspect]
     Dosage: 1 MG MILLIGRAM(S)
     Route: 042
     Dates: start: 20100219, end: 20100219
  3. LOVENOX [Suspect]
     Route: 058
     Dates: start: 20100220, end: 20100226
  4. AMOXICILLIN AND CLAVULANATE POTASSIUM [Suspect]
     Route: 042
     Dates: start: 20100219, end: 20100224
  5. (MOPRAL /00661201/) [Suspect]
     Dosage: 40 MG MILLIGRAM(S)
     Route: 042
     Dates: start: 20100219, end: 20100302
  6. CANCIDAS [Suspect]
     Dosage: 50 MG MILLIGRAM(S)
     Route: 042
     Dates: start: 20100222, end: 20100225
  7. NIMBEX [Suspect]
     Route: 042
     Dates: start: 20100222, end: 20100224
  8. SUFENTA PRESERVATIVE FREE [Suspect]
     Route: 042
     Dates: start: 20100219, end: 20100302
  9. (VECTARION) [Suspect]
     Route: 042
     Dates: start: 20100222, end: 20100224
  10. (KETAMINE) [Suspect]
     Route: 042
     Dates: start: 20100219, end: 20100219
  11. (HUMAN ACTRAPID) [Suspect]
     Route: 042
     Dates: start: 20100219, end: 20100219
  12. ROCURONIUM BROMIDE [Suspect]
     Route: 042
     Dates: start: 20100219, end: 20100219
  13. TRACRIUM [Suspect]
     Route: 042
     Dates: start: 20100219, end: 20100219
  14. (EPHEDRINE) [Suspect]
     Route: 042
     Dates: start: 20100219, end: 20100219
  15. ACUPAN [Suspect]
     Route: 042
     Dates: start: 20100219, end: 20100221
  16. HUMALOG [Suspect]
     Route: 058
     Dates: start: 20100219
  17. ATARAX [Suspect]
     Route: 042
     Dates: start: 20100220, end: 20100220
  18. (GENTALLINE) [Suspect]
     Route: 042
     Dates: start: 20100222, end: 20100223
  19. (LARGACTIL /00011902/) [Concomitant]
  20. (ACTIBIL) [Concomitant]
  21. (METFORMIN) [Concomitant]
  22. PRAVASTATIN SODIUM [Concomitant]
  23. (ANAFANIL) [Concomitant]
  24. (TARDTFERON /00023503/) [Concomitant]
  25. (TAZOCILLINE) [Concomitant]

REACTIONS (8)
  - BACTEROIDES INFECTION [None]
  - ENTEROBACTER INFECTION [None]
  - HAEMODIALYSIS [None]
  - PLEURAL EFFUSION [None]
  - RENAL FAILURE [None]
  - RESPIRATORY DISTRESS [None]
  - SEPTIC SHOCK [None]
  - STEVENS-JOHNSON SYNDROME [None]
